FAERS Safety Report 4355570-9 (Version None)
Quarter: 2004Q2

REPORT INFORMATION
  Report Type: 
  Country: None (occurrence: None)
  Receive Date: 20040510
  Receipt Date: 20031106
  Transmission Date: 20050107
  Serious: Yes (Hospitalization)
  Sender: FDA-Public Use
  Company Number: BE-BRISTOL-MYERS SQUIBB COMPANY-12429742

PATIENT
  Age: 43 Year
  Sex: Female
  Weight: 50 kg

DRUGS (7)
  1. ATAZANAVIR [Suspect]
     Indication: HIV INFECTION
     Dates: start: 20031008
  2. EFAVIRENZ [Suspect]
     Dates: start: 20031008
  3. DIDANOSINE [Concomitant]
     Dates: start: 20031008
  4. RITONAVIR [Concomitant]
     Dates: start: 20031008
  5. LAMIVUDINE [Concomitant]
     Dates: start: 20031008
  6. FLUCONAZOLE [Concomitant]
     Dates: start: 20031009
  7. CO-TRIMOXAZOLE [Concomitant]
     Dosage: ^960 MG^
     Dates: start: 20031008

REACTIONS (15)
  - ANOREXIA [None]
  - BALANCE DISORDER [None]
  - BLOOD BILIRUBIN INCREASED [None]
  - BRADYPHRENIA [None]
  - CAPUT MEDUSAE [None]
  - DRY MOUTH [None]
  - GAIT DISTURBANCE [None]
  - HEADACHE [None]
  - HYPOREFLEXIA [None]
  - HYPOTONIA [None]
  - MALAISE [None]
  - NAUSEA [None]
  - NUCLEAR MAGNETIC RESONANCE IMAGING ABNORMAL [None]
  - THIRST [None]
  - VERTIGO [None]
